FAERS Safety Report 18888118 (Version 1)
Quarter: 2021Q1

REPORT INFORMATION
  Report Type: Spontaneous
  Country: US (occurrence: US)
  Receive Date: 20210213
  Receipt Date: 20210213
  Transmission Date: 20210420
  Serious: No
  Sender: FDA-Public Use
  Company Number: US-JNJFOC-20210208548

PATIENT
  Age: 36 Year
  Sex: Male
  Weight: 53.57 kg

DRUGS (1)
  1. WOMENS ROGAINE [Suspect]
     Active Substance: MINOXIDIL
     Indication: ALOPECIA
     Dosage: AS RECOMMENDED TWICE A DAY?LAST DOSE ADMINISTERED 1 WEEK AGO
     Route: 061
     Dates: start: 202101

REACTIONS (3)
  - Application site pruritus [Recovered/Resolved]
  - Product use issue [Unknown]
  - Intentional product misuse [Unknown]

NARRATIVE: CASE EVENT DATE: 202101
